FAERS Safety Report 19510405 (Version 1)
Quarter: 2021Q3

REPORT INFORMATION
  Report Type: Spontaneous
  Country: US (occurrence: US)
  Receive Date: 20210708
  Receipt Date: 20210708
  Transmission Date: 20211014
  Serious: No
  Sender: FDA-Public Use
  Company Number: None

PATIENT
  Age: 53 Year
  Sex: Female
  Weight: 78.75 kg

DRUGS (2)
  1. CERAVE DEVELOPED WITH DERMATOLOGISTS SUNSCREEN BROAD SPECTRUM SPF 50 FACE [Concomitant]
     Active Substance: TITANIUM DIOXIDE\ZINC OXIDE
     Dates: start: 20210630, end: 20210701
  2. CERAVE DEVELOPED WITH DERMATOLOGISTS SUNSCREEN BROAD SPECTRUM SPF 50 FACE [Suspect]
     Active Substance: TITANIUM DIOXIDE\ZINC OXIDE
     Indication: PROPHYLAXIS AGAINST SOLAR RADIATION
     Route: 061
     Dates: start: 20210630, end: 20210701

REACTIONS (5)
  - Urticaria [None]
  - Skin discolouration [None]
  - Pruritus [None]
  - Burning sensation [None]
  - Skin exfoliation [None]

NARRATIVE: CASE EVENT DATE: 20210701
